FAERS Safety Report 9238766 (Version 1)
Quarter: 2013Q1

REPORT INFORMATION
  Report Type: Spontaneous
  Country: US (occurrence: None)
  Receive Date: 20121101
  Receipt Date: 20121101
  Transmission Date: 20140127
  Serious: Yes (Other)
  Sender: FDA-Public Use
  Company Number: 349150

PATIENT
  Age: 60 Year
  Sex: Female
  Weight: 65.3 kg

DRUGS (4)
  1. VAGIFEM LD [Suspect]
     Indication: ATROPHIC VULVOVAGINITIS
     Route: 067
     Dates: start: 2010, end: 20120120
  2. VAGIFEM LD [Suspect]
     Indication: DYSPAREUNIA
     Route: 067
     Dates: start: 2010, end: 20120120
  3. VAGIFEM [Suspect]
     Indication: ATROPHIC VULVOVAGINITIS
     Route: 067
     Dates: start: 2003, end: 2010
  4. VAGIFEM [Suspect]
     Indication: DYSPAREUNIA
     Route: 067
     Dates: start: 2003, end: 2010

REACTIONS (1)
  - Breast cancer [None]
